FAERS Safety Report 4883483-2 (Version None)
Quarter: 2006Q1

REPORT INFORMATION
  Report Type: 
  Country: None (occurrence: None)
  Receive Date: 20060118
  Receipt Date: 20050414
  Transmission Date: 20060701
  Serious: Yes (Other)
  Sender: FDA-Public Use
  Company Number: US-MERCK-0504USA03154

PATIENT
  Age: 54 Year
  Sex: Male
  Weight: 84 kg

DRUGS (4)
  1. VIOXX [Suspect]
     Indication: ARTHRITIS
     Route: 048
     Dates: start: 20000101, end: 20031118
  2. VIOXX [Suspect]
     Route: 048
     Dates: start: 20000101, end: 20031118
  3. ALPRAZOLAM [Concomitant]
     Route: 065
  4. [THERAPY UNSPECIFIED] [Concomitant]
     Route: 065

REACTIONS (4)
  - EMBOLIC STROKE [None]
  - EYE DISORDER [None]
  - MUSCLE RUPTURE [None]
  - VISUAL ACUITY REDUCED [None]
